FAERS Safety Report 6746218-4 (Version None)
Quarter: 2010Q2

REPORT INFORMATION
  Report Type: 
  Country: None (occurrence: None)
  Receive Date: 20100528
  Receipt Date: 20090514
  Transmission Date: 20101027
  Serious: No
  Sender: FDA-Public Use
  Company Number: US-ASTRAZENECA-2009UW12491

PATIENT
  Age: 86 Year
  Sex: Male
  Weight: 74.8 kg

DRUGS (8)
  1. PRILOSEC [Suspect]
     Route: 048
  2. PLAVIX [Concomitant]
     Indication: CARDIAC DISORDER
  3. SINGULAIR [Concomitant]
     Indication: MULTIPLE ALLERGIES
  4. ZETIA [Concomitant]
     Indication: BLOOD CHOLESTEROL
  5. CELEXA [Concomitant]
     Indication: DEPRESSION
  6. ASPIRIN [Concomitant]
  7. COD LIVER OIL [Concomitant]
  8. LOVAZA [Concomitant]

REACTIONS (1)
  - DYSPEPSIA [None]
